FAERS Safety Report 15863768 (Version 1)
Quarter: 2019Q1

REPORT INFORMATION
  Report Type: Spontaneous
  Country: US (occurrence: US)
  Receive Date: 20190124
  Receipt Date: 20190124
  Transmission Date: 20190417
  Serious: No
  Sender: FDA-Public Use
  Company Number: US-ENDO PHARMACEUTICALS INC-2018-040105

PATIENT
  Age: 35 Year
  Sex: Male
  Weight: 88.44 kg

DRUGS (2)
  1. FORTESTA [Suspect]
     Active Substance: TESTOSTERONE
     Indication: BLOOD TESTOSTERONE DECREASED
     Dosage: 60 MG, DAILY (3 PUMPS PER THIGH)
     Route: 065
     Dates: start: 20180604
  2. GABAPENTIN. [Concomitant]
     Active Substance: GABAPENTIN
     Indication: SCIATICA

REACTIONS (3)
  - Underdose [Unknown]
  - Blood testosterone decreased [Unknown]
  - Product container issue [Unknown]

NARRATIVE: CASE EVENT DATE: 20180605
